FAERS Safety Report 19458808 (Version 1)
Quarter: 2021Q2

REPORT INFORMATION
  Report Type: Spontaneous
  Country: US (occurrence: US)
  Receive Date: 20210625
  Receipt Date: 20210625
  Transmission Date: 20210717
  Serious: No
  Sender: FDA-Public Use
  Company Number: None

PATIENT
  Age: 71 Year
  Sex: Male
  Weight: 78.5 kg

DRUGS (2)
  1. LEUPROLIDE ACETATE 45 MG [Suspect]
     Active Substance: LEUPROLIDE ACETATE
     Dates: end: 20161108
  2. CASODEX [Suspect]
     Active Substance: BICALUTAMIDE
     Dates: end: 20171010

REACTIONS (2)
  - Haematuria [None]
  - Cystitis [None]

NARRATIVE: CASE EVENT DATE: 20210617
